FAERS Safety Report 4525523-6 (Version None)
Quarter: 2004Q4

REPORT INFORMATION
  Report Type: 
  Country: None (occurrence: None)
  Receive Date: 20041116
  Receipt Date: 20040923
  Transmission Date: 20050328
  Serious: No
  Sender: FDA-Public Use
  Company Number: S04-USA-06412-01

PATIENT
  Age: 84 Year
  Sex: Male

DRUGS (8)
  1. NAMENDA [Suspect]
     Indication: DEMENTIA
     Dosage: 5 MG QD PO
     Route: 048
     Dates: start: 20040829, end: 20040904
  2. NAMENDA [Suspect]
     Indication: DEMENTIA
     Dosage: 5 MG BID PO
     Route: 048
     Dates: start: 20040905, end: 20040911
  3. NAMENDA [Suspect]
     Indication: DEMENTIA
     Dosage: 15 MG QD PO
     Route: 048
     Dates: start: 20040912, end: 20040918
  4. NAMENDA [Suspect]
     Indication: DEMENTIA
     Dosage: 10 MG BID PO
     Route: 048
     Dates: start: 20040919, end: 20040927
  5. NAMENDA [Suspect]
     Indication: DEMENTIA
     Dosage: 5 MB BID PO
     Route: 048
     Dates: start: 20040928
  6. ARICEPT (DONEPEZIL HYDRCOHLORIDE) [Concomitant]
  7. QUESTRAN [Concomitant]
  8. LOPRESSOR [Concomitant]

REACTIONS (4)
  - DIZZINESS [None]
  - HALLUCINATION, VISUAL [None]
  - HYPERSOMNIA [None]
  - MENTAL IMPAIRMENT [None]
